FAERS Safety Report 8756726 (Version 3)
Quarter: 2014Q1

REPORT INFORMATION
  Report Type: Spontaneous
  Country: US (occurrence: US)
  Receive Date: 20120828
  Receipt Date: 20140108
  Transmission Date: 20141002
  Serious: Yes (Hospitalization, Other)
  Sender: FDA-Public Use
  Company Number: US-BAYER-2012-086231

PATIENT
  Age: 25 Year
  Sex: Female
  Weight: 97.51 kg

DRUGS (9)
  1. BEYAZ [Suspect]
     Dosage: UNK
     Dates: start: 200702, end: 200904
  2. BEYAZ [Suspect]
     Dosage: UNK
     Dates: start: 20120220
  3. BEYAZ [Suspect]
     Dosage: UNK
     Dates: start: 20120513
  4. YAZ [Suspect]
     Dosage: UNK
     Dates: start: 200702, end: 200904
  5. YAZ [Suspect]
  6. NSAID^S [Concomitant]
  7. EXCEDRIN MIGRAINE [Concomitant]
     Dosage: UNK
     Dates: start: 2007, end: 2012
  8. MULTIVITAMIN [Concomitant]
     Dosage: UNK
     Dates: start: 2009, end: 2012
  9. ALBUTEROL [Concomitant]
     Dosage: UNK, PRN (AS NEEDED)
     Dates: start: 20120513

REACTIONS (9)
  - Cholelithiasis [None]
  - Cholecystitis chronic [None]
  - Bile duct obstruction [None]
  - Hepatic function abnormal [None]
  - Pain [None]
  - Emotional distress [None]
  - Injury [None]
  - Anxiety [None]
  - Psychological trauma [None]
